FAERS Safety Report 18207910 (Version 1)
Quarter: 2020Q3

REPORT INFORMATION
  Report Type: Spontaneous
  Country: US (occurrence: US)
  Receive Date: 20200828
  Receipt Date: 20200828
  Transmission Date: 20201103
  Serious: No
  Sender: FDA-Public Use
  Company Number: US-USWM, LLC-USW202005-001111

PATIENT
  Age: 67 Year
  Sex: Female

DRUGS (3)
  1. LUCEMYRA [Suspect]
     Active Substance: LOFEXIDINE
  2. LUCEMYRA [Suspect]
     Active Substance: LOFEXIDINE
     Indication: PRODUCT USED FOR UNKNOWN INDICATION
     Dates: start: 202003
  3. LUCEMYRA [Suspect]
     Active Substance: LOFEXIDINE

REACTIONS (4)
  - Abdominal discomfort [Not Recovered/Not Resolved]
  - Bruxism [Not Recovered/Not Resolved]
  - Feeling abnormal [Not Recovered/Not Resolved]
  - Product dose omission issue [Unknown]

NARRATIVE: CASE EVENT DATE: 20200519
